FAERS Safety Report 6212944-9 (Version None)
Quarter: 2009Q2

REPORT INFORMATION
  Report Type: 
  Country: None (occurrence: None)
  Receive Date: 20090603
  Receipt Date: 20090520
  Transmission Date: 20091009
  Serious: Yes (Death, Life-Threatening, Disabling)
  Sender: FDA-Public Use
  Company Number: JP-NOVOPROD-286651

PATIENT
  Sex: Male
  Weight: 49 kg

DRUGS (2)
  1. LEVEMIR [Suspect]
     Indication: TYPE 2 DIABETES MELLITUS
     Dosage: 6 TO 8 IU
     Route: 058
     Dates: start: 20090424
  2. LEVEMIR [Suspect]
     Indication: HYPERGLYCAEMIA

REACTIONS (4)
  - CEREBRAL INFARCTION [None]
  - HYPOGLYCAEMIA [None]
  - HYPOGLYCAEMIC COMA [None]
  - PRODUCT QUALITY ISSUE [None]
